FAERS Safety Report 14909134 (Version 1)
Quarter: 2018Q2

REPORT INFORMATION
  Report Type: Spontaneous
  Country: DE (occurrence: DE)
  Receive Date: 20180517
  Receipt Date: 20180517
  Transmission Date: 20180711
  Serious: Yes (Hospitalization)
  Sender: FDA-Public Use
  Company Number: DE-ASTRAZENECA-2018SE61644

PATIENT
  Age: 72 Year
  Sex: Male
  Weight: 75 kg

DRUGS (15)
  1. BISOPROLOL [Concomitant]
     Active Substance: BISOPROLOL
     Dosage: 5 MG, 1-0-0-0, TABLET
     Route: 048
  2. HYDROCHLOROTHIAZIDE. [Concomitant]
     Active Substance: HYDROCHLOROTHIAZIDE
     Dosage: 12.5 MG, 1-0-0-0, TABLET
     Route: 048
  3. VITAMIN B12 [Concomitant]
     Active Substance: CYANOCOBALAMIN
     Dosage: 1000 ???G, ACCORDING TO SCHEME, INJECTION/INFUSION SOLUTION
     Route: 030
  4. OMEPRAZOL [Concomitant]
     Active Substance: OMEPRAZOLE
     Dosage: 20 MG, 1-0-0-0, TABLET
     Route: 048
  5. RELVAR ELLIPTA [Concomitant]
     Active Substance: FLUTICASONE FUROATE\VILANTEROL TRIFENATATE
     Dosage: 92|22 ???G, 1-0-0-0, METERED DOSE INHALER
     Route: 055
  6. APIDRA [Suspect]
     Active Substance: INSULIN GLULISINE
     Dosage: 3 IU, 1-1-1-0, INJECTION/INFUSION SOLUTION
     Route: 058
  7. SALBULAIR AUTOHALER [Concomitant]
     Dosage: 100 ???G, AS REQUIRED, METERED DOSE INHALER
     Route: 055
  8. ZOLPIDEM [Concomitant]
     Active Substance: ZOLPIDEM\ZOLPIDEM TARTRATE
     Dosage: 10 MG, AS REQUIRED, TABLET
     Route: 048
  9. ASPIRIN. [Concomitant]
     Active Substance: ASPIRIN
     Dosage: 100 MG, 1-0-0-0, TABLET
     Route: 048
  10. SAXAGLIPTIN [Suspect]
     Active Substance: SAXAGLIPTIN
     Dosage: 5 MG, 1-0-0-0, TABLET
     Route: 048
  11. INSULIN [Suspect]
     Active Substance: INSULIN NOS
     Dosage: 12 IU, INJECTION/INFUSION SOLUTION
     Route: 058
  12. METFORMIN [Concomitant]
     Active Substance: METFORMIN HYDROCHLORIDE
     Dosage: 850 MG, 1-0-1-0, TABLET
     Route: 048
  13. FORXIGA [Suspect]
     Active Substance: DAPAGLIFLOZIN
     Dosage: 10 MG, 1-0-0-0, TABLET
     Route: 048
  14. SIMVASTATIN. [Concomitant]
     Active Substance: SIMVASTATIN
     Dosage: 40 MG, 0-0-1-0, TABLET
     Route: 048
  15. AMINEURIN [Concomitant]
     Active Substance: AMITRIPTYLINE HYDROCHLORIDE
     Dosage: 100 MG, 0-0-0.5-0, TABLETTEN
     Route: 048

REACTIONS (7)
  - Diabetic coma [Unknown]
  - Vomiting [Unknown]
  - Nausea [Unknown]
  - Hyperinsulinaemic hypoglycaemia [Unknown]
  - Accidental overdose [Unknown]
  - General physical health deterioration [Unknown]
  - Hypoglycaemia [Unknown]
